FAERS Safety Report 16643862 (Version 1)
Quarter: 2019Q3

REPORT INFORMATION
  Report Type: Spontaneous
  Country: CA (occurrence: CA)
  Receive Date: 20190729
  Receipt Date: 20190729
  Transmission Date: 20191004
  Serious: Yes (Hospitalization)
  Sender: FDA-Public Use
  Company Number: CA-PFIZER INC-2019318644

PATIENT
  Age: 70 Year
  Sex: Female
  Weight: 92 kg

DRUGS (6)
  1. ATORVASTATIN CALCIUM. [Suspect]
     Active Substance: ATORVASTATIN CALCIUM
     Dosage: 80 MG, 1X/DAY
     Route: 065
  2. HYZAAR [Suspect]
     Active Substance: HYDROCHLOROTHIAZIDE\LOSARTAN POTASSIUM
     Dosage: 12.5 MG, 1X/DAY
     Route: 065
  3. ERLOTINIB HYDROCHLORIDE. [Suspect]
     Active Substance: ERLOTINIB HYDROCHLORIDE
     Dosage: 150 MG, 1X/DAY
     Route: 048
  4. ASA [Suspect]
     Active Substance: ASPIRIN
     Dosage: 325 MG, 1X/DAY
     Route: 065
  5. NADOLOL. [Suspect]
     Active Substance: NADOLOL
     Dosage: 40 MG, 1X/DAY
     Route: 065
  6. AMLODIPINE BESILATE [Suspect]
     Active Substance: AMLODIPINE BESYLATE
     Dosage: 5 MG, 1X/DAY
     Route: 065

REACTIONS (6)
  - Diverticulum intestinal [Recovered/Resolved]
  - Gastrointestinal haemorrhage [Recovered/Resolved]
  - Large intestine polyp [Recovered/Resolved]
  - Anaemia [Recovered/Resolved]
  - Colon adenoma [Recovered/Resolved]
  - Diverticulum [Recovered/Resolved]
